FAERS Safety Report 5464234-X (Version None)
Quarter: 2007Q3

REPORT INFORMATION
  Report Type: 
  Country: None (occurrence: None)
  Receive Date: 20070921
  Receipt Date: 20070914
  Transmission Date: 20080115
  Serious: Yes (Death, Life-Threatening, Other)
  Sender: FDA-Public Use
  Company Number: JP-BRISTOL-MYERS SQUIBB COMPANY-13877741

PATIENT
  Age: 65 Year
  Sex: Male

DRUGS (10)
  1. IFOMIDE [Suspect]
     Indication: PROSTATE CANCER
     Route: 042
     Dates: start: 20050621, end: 20050721
  2. AQUPLA [Suspect]
     Indication: PROSTATE CANCER
     Route: 042
     Dates: start: 20050621, end: 20050719
  3. LOXONIN [Suspect]
     Indication: PAIN IN EXTREMITY
     Dosage: THERAPY DATES: 20-JUL-2005 TO 28-JUL2005 AND 27-JUL-2007 TO UNKNOWN.
     Route: 048
     Dates: start: 20050720
  4. TAXOTERE [Suspect]
     Indication: PROSTATE CANCER
     Dates: start: 20050621
  5. METHOTREXATE [Concomitant]
     Indication: TRANSITIONAL CELL CARCINOMA
     Dates: start: 20050401
  6. DOXORUBICIN HCL [Concomitant]
     Indication: TRANSITIONAL CELL CARCINOMA
     Dates: start: 20050401
  7. TAXOL [Concomitant]
     Indication: TRANSITIONAL CELL CARCINOMA
     Route: 041
     Dates: start: 20050601
  8. CISPLATIN [Concomitant]
     Indication: TRANSITIONAL CELL CARCINOMA
     Dates: start: 20050401
  9. VINBLASTINE SULFATE [Concomitant]
     Indication: TRANSITIONAL CELL CARCINOMA
     Dates: start: 20050401
  10. CYTOTEC [Concomitant]
     Dosage: THERAPY DATES 27-JUN-2005 : UNKNOWN.
     Route: 048
     Dates: start: 20050720, end: 20050728

REACTIONS (8)
  - CYANOSIS [None]
  - DEPRESSED LEVEL OF CONSCIOUSNESS [None]
  - DISEASE PROGRESSION [None]
  - HAEMOGLOBIN DECREASED [None]
  - NEUTROPHIL COUNT DECREASED [None]
  - PAIN IN EXTREMITY [None]
  - RENAL FAILURE ACUTE [None]
  - RESPIRATORY FAILURE [None]
